FAERS Safety Report 6967565-7 (Version None)
Quarter: 2010Q3

REPORT INFORMATION
  Report Type: 
  Country: None (occurrence: None)
  Receive Date: 20100901
  Receipt Date: 20100816
  Transmission Date: 20110219
  Serious: Yes (Death)
  Sender: FDA-Public Use
  Company Number: 2010EU000769

PATIENT
  Age: 96 Year
  Sex: Female
  Weight: 50 kg

DRUGS (3)
  1. PROTOPIC [Suspect]
     Indication: ECZEMA
     Dosage: 1 %,  /D
  2. COVERSYL PLUS (INDAPAMIDE, PERINDOPRIL ERBUMINE) [Concomitant]
  3. TEMESTA (ASTEMIZOLE) [Concomitant]

REACTIONS (1)
  - MYELOID LEUKAEMIA [None]
